FAERS Safety Report 9480747 (Version 1)
Quarter: 2013Q3

REPORT INFORMATION
  Report Type: Spontaneous
  Country: US (occurrence: US)
  Receive Date: 20130828
  Receipt Date: 20130828
  Transmission Date: 20140515
  Serious: Yes (Other)
  Sender: FDA-Public Use
  Company Number: US-AMGEN-KDL115515

PATIENT
  Age: 55 Year
  Sex: Female

DRUGS (5)
  1. ENBREL [Suspect]
     Indication: RHEUMATOID ARTHRITIS
     Dosage: 25 MG, 2 TIMES/WK
     Route: 058
     Dates: start: 20040726, end: 20041101
  2. METHOTREXATE [Concomitant]
  3. TRAMADOL HYDROCHLORIDE W/ACETAMINOPHEN [Concomitant]
  4. LEFLUNOMIDE [Concomitant]
  5. MELOXICAM [Concomitant]

REACTIONS (2)
  - Haemorrhage [Unknown]
  - Pyrexia [Unknown]
